FAERS Safety Report 7608551-3 (Version None)
Quarter: 2011Q3

REPORT INFORMATION
  Report Type: 
  Country: None (occurrence: None)
  Receive Date: 20110714
  Receipt Date: 20110630
  Transmission Date: 20111222
  Serious: Yes (Hospitalization, Other)
  Sender: FDA-Public Use
  Company Number: PHHY2011DE41731

PATIENT
  Sex: Male
  Weight: 75 kg

DRUGS (12)
  1. DIURETICS [Concomitant]
     Route: 048
  2. ACE INHIBITOR NOS [Concomitant]
     Dosage: UNK
     Route: 048
     Dates: start: 20090303
  3. FALITHROM [Concomitant]
     Dosage: 3 MG, QD
     Dates: start: 20091117
  4. ENALAPRIL MALEATE [Concomitant]
     Dosage: 10 MG, QD
     Route: 048
     Dates: start: 20090512
  5. CALCIUM CHANNEL BLOCKERS [Concomitant]
     Dosage: UNK
     Route: 048
     Dates: end: 20100503
  6. SIMVASTATIN [Concomitant]
     Dosage: 20 MG, QD
     Route: 048
     Dates: start: 20060508
  7. THIENOPYRIDINE [Concomitant]
     Dosage: UNK
  8. METOPROLOL TARTRATE [Suspect]
     Dosage: 95 MG, QD
     Route: 048
  9. METOPROLOL TARTRATE [Suspect]
     Dosage: 1 DF, QD 118.75 MG
     Route: 048
     Dates: start: 20100503, end: 20100727
  10. ENALAPRIL MALEATE [Concomitant]
     Dosage: 10/25 MG
     Route: 048
     Dates: start: 20061108
  11. MULTAQ [Concomitant]
     Dosage: 800 MG, QD
     Route: 048
     Dates: start: 20100629
  12. ALISKIREN [Suspect]
     Indication: HYPERTENSION
     Dosage: 2 DF, BID
     Route: 048
     Dates: start: 20081201, end: 20090303

REACTIONS (8)
  - BRADYCARDIA [None]
  - SYNCOPE [None]
  - MALAISE [None]
  - SKIN DISORDER [None]
  - ATRIAL FIBRILLATION [None]
  - VERTIGO [None]
  - ANGINA PECTORIS [None]
  - DYSPNOEA EXERTIONAL [None]
